FAERS Safety Report 21573062 (Version 2)
Quarter: 2022Q4

REPORT INFORMATION
  Report Type: Spontaneous
  Country: CZ (occurrence: CZ)
  Receive Date: 20221109
  Receipt Date: 20221118
  Transmission Date: 20230113
  Serious: Yes (Life-Threatening, Hospitalization, Disabling, Other)
  Sender: FDA-Public Use
  Company Number: None

PATIENT
  Age: 35 Year
  Sex: Female
  Weight: 79 kg

DRUGS (13)
  1. COMIRNATY [Suspect]
     Active Substance: TOZINAMERAN
     Indication: COVID-19 immunisation
     Dosage: DOSE 3 (BOOSTER), SINGLE
     Route: 030
     Dates: start: 20211217, end: 20211217
  2. SOLU-MEDROL [Suspect]
     Active Substance: METHYLPREDNISOLONE SODIUM SUCCINATE
     Dosage: CUMULATIVE DOSE OF 5 G
     Route: 042
     Dates: start: 20220101, end: 20220207
  3. SOLU-MEDROL [Suspect]
     Active Substance: METHYLPREDNISOLONE SODIUM SUCCINATE
     Dosage: 500 MG, 1X/DAY
     Route: 042
     Dates: start: 20211228, end: 20211229
  4. SOLU-MEDROL [Suspect]
     Active Substance: METHYLPREDNISOLONE SODIUM SUCCINATE
     Dosage: CUMULATIVE DOSE OF 11,5G
     Route: 042
     Dates: start: 20220213, end: 20220422
  5. PREDNISONE [Suspect]
     Active Substance: PREDNISONE
     Dosage: TAPERING OF PREDNISONE FROM INITIAL 40MG BY 5MG EVERY WEEK
     Route: 048
     Dates: start: 202112, end: 20220123
  6. GILENYA [Suspect]
     Active Substance: FINGOLIMOD HYDROCHLORIDE
     Indication: Multiple sclerosis
     Dosage: 0.5 MG, EVERY 48 HOURS (ONE TABLET EVERY OTHER DAY FOR ONE MONTH)
     Route: 048
     Dates: start: 20211129, end: 20220115
  7. GILENYA [Suspect]
     Active Substance: FINGOLIMOD HYDROCHLORIDE
     Dosage: 0.5 MG, 1X/DAY (1-0-0)
     Route: 048
     Dates: start: 20211124, end: 20211128
  8. MAGNESIUM CARBONATE\MAGNESIUM OXIDE [Concomitant]
     Active Substance: MAGNESIUM CARBONATE\MAGNESIUM OXIDE
     Dosage: 1-0-1
  9. DEPO-MEDROL [Concomitant]
     Active Substance: METHYLPREDNISOLONE ACETATE
     Dosage: 80 MG
     Route: 037
     Dates: start: 2022, end: 2022
  10. VENLAFAXINE [Concomitant]
     Active Substance: VENLAFAXINE HYDROCHLORIDE
     Dosage: 150MG/75MG 1-0-0 (ALTERNATING DOSES, EVERY OTHER DAY)
     Route: 048
  11. MIRTAZAPINE [Concomitant]
     Active Substance: MIRTAZAPINE
     Dosage: 0-0-1
  12. MAVENCLAD [Concomitant]
     Active Substance: CLADRIBINE
     Dates: start: 20220126
  13. TYSABRI [Concomitant]
     Active Substance: NATALIZUMAB

REACTIONS (18)
  - Multiple sclerosis relapse [Recovered/Resolved with Sequelae]
  - Hemiparesis [Unknown]
  - Paraparesis [Unknown]
  - Paraesthesia [Unknown]
  - Vertigo [Recovered/Resolved]
  - Lhermitte^s sign [Unknown]
  - Mobility decreased [Unknown]
  - Paraesthesia [Unknown]
  - Dysarthria [Unknown]
  - Urinary hesitation [Unknown]
  - Paraesthesia [Unknown]
  - Paraesthesia [Unknown]
  - Urinary tract infection [Unknown]
  - Leukoencephalopathy [Unknown]
  - Nausea [Recovered/Resolved]
  - Tongue biting [Unknown]
  - Leukocytosis [Unknown]
  - Sinus tachycardia [Unknown]

NARRATIVE: CASE EVENT DATE: 20220101
